FAERS Safety Report 21557174 (Version 1)
Quarter: 2022Q4

REPORT INFORMATION
  Report Type: Spontaneous
  Country: AU (occurrence: AU)
  Receive Date: 20221105
  Receipt Date: 20221105
  Transmission Date: 20230113
  Serious: Yes (Other)
  Sender: FDA-Public Use
  Company Number: AU-drreddys-LIT/AUS/22/0156808

PATIENT
  Age: 72 Year
  Sex: Male

DRUGS (2)
  1. POSACONAZOLE [Suspect]
     Active Substance: POSACONAZOLE
     Indication: Cutaneous mucormycosis
     Route: 048
  2. AMPHOTERICIN B [Suspect]
     Active Substance: AMPHOTERICIN B
     Indication: Cutaneous mucormycosis
     Route: 051

REACTIONS (3)
  - Multiple organ dysfunction syndrome [Unknown]
  - Cutaneous mucormycosis [Unknown]
  - Condition aggravated [Unknown]
